FAERS Safety Report 8218687-4 (Version None)
Quarter: 2012Q1

REPORT INFORMATION
  Report Type: 
  Country: None (occurrence: None)
  Receive Date: 20120319
  Receipt Date: 20120306
  Transmission Date: 20120608
  Serious: Yes (Hospitalization)
  Sender: FDA-Public Use
  Company Number: PHHY2012MX023504

PATIENT
  Sex: Female

DRUGS (6)
  1. IMDUR [Concomitant]
     Indication: HYPERTENSIVE CRISIS
     Dosage: 0.5 DF, DAILY
  2. OMEPRAZOLE [Concomitant]
     Indication: HYPERTENSIVE CRISIS
  3. LORATADINE [Concomitant]
     Indication: HYPERTENSIVE CRISIS
     Dosage: 10 MG, UNK
     Dates: start: 20120210, end: 20120215
  4. FUROSEMIDE [Concomitant]
     Indication: HYPERTENSIVE CRISIS
     Dosage: 0.5 DF, DAILY
     Dates: start: 20120210, end: 20120215
  5. EXFORGE HCT [Suspect]
     Indication: HYPERTENSION
     Dosage: 1 DF (VALS 320 MG, AMLO 10 MG, HYDR 25 MG), DAILY
     Dates: start: 20120210, end: 20120215
  6. SPIRONOLACTONE [Concomitant]
     Indication: HYPERTENSIVE CRISIS
     Dosage: 2 DF, DAILY

REACTIONS (11)
  - ABDOMINAL PAIN UPPER [None]
  - DYSPNOEA [None]
  - LUNG DISORDER [None]
  - COUGH [None]
  - JUGULAR VEIN DISTENSION [None]
  - BACK PAIN [None]
  - MUSCLE SPASMS [None]
  - NAUSEA [None]
  - DIZZINESS [None]
  - SALIVARY HYPERSECRETION [None]
  - VOMITING [None]
